FAERS Safety Report 20220788 (Version 2)
Quarter: 2022Q1

REPORT INFORMATION
  Report Type: Spontaneous
  Country: FI (occurrence: None)
  Receive Date: 20211223
  Receipt Date: 20220111
  Transmission Date: 20220423
  Serious: Yes (Other)
  Sender: FDA-Public Use
  Company Number: FI-ROCHE-2981819

PATIENT
  Sex: Female

DRUGS (7)
  1. TOCILIZUMAB [Suspect]
     Active Substance: TOCILIZUMAB
     Indication: Arteritis
     Route: 042
     Dates: start: 20210610
  2. TOCILIZUMAB [Suspect]
     Active Substance: TOCILIZUMAB
     Route: 042
     Dates: start: 20210805
  3. TOCILIZUMAB [Suspect]
     Active Substance: TOCILIZUMAB
     Route: 042
     Dates: start: 20210901
  4. TOCILIZUMAB [Suspect]
     Active Substance: TOCILIZUMAB
     Route: 042
     Dates: start: 20211001
  5. TOCILIZUMAB [Suspect]
     Active Substance: TOCILIZUMAB
     Route: 042
     Dates: start: 20211029
  6. TOCILIZUMAB [Suspect]
     Active Substance: TOCILIZUMAB
     Route: 042
     Dates: start: 20211129
  7. CALCIUM CARBONATE [Concomitant]
     Active Substance: CALCIUM CARBONATE
     Indication: Mineral supplementation

REACTIONS (11)
  - Pruritus [Unknown]
  - Genital haemorrhage [Unknown]
  - Back pain [Unknown]
  - Vascular pain [Unknown]
  - Insomnia [Unknown]
  - Fatigue [Unknown]
  - Rash [Unknown]
  - Contusion [Unknown]
  - Muscle spasms [Unknown]
  - Tremor [Unknown]
  - Uterine polyp [Unknown]

NARRATIVE: CASE EVENT DATE: 20210708
